FAERS Safety Report 8837972 (Version 1)
Quarter: 2012Q4

REPORT INFORMATION
  Report Type: 
  Country: US (occurrence: US)
  Receive Date: 20121012
  Receipt Date: 20121012
  Transmission Date: 20130627
  Serious: Yes (Other)
  Sender: FDA-Public Use
  Company Number: US-ROCHE-1144206

PATIENT

DRUGS (2)
  1. XOLAIR [Suspect]
     Indication: ASTHMA
     Route: 065
     Dates: start: 2011
  2. IVIG [Concomitant]

REACTIONS (1)
  - Oesophageal carcinoma [Unknown]
